FAERS Safety Report 8042397-X (Version None)
Quarter: 2011Q4

REPORT INFORMATION
  Report Type: 
  Country: None (occurrence: None)
  Receive Date: 20111209
  Receipt Date: 20110914
  Transmission Date: 20120403
  Serious: Yes (Other)
  Sender: FDA-Public Use
  Company Number: TH-2011-00361

PATIENT
  Age: 43 Year
  Sex: Male

DRUGS (3)
  1. EGRIFTA [Suspect]
     Indication: LIPODYSTROPHY ACQUIRED
     Dosage: SUBCUTANEOUS
     Route: 058
     Dates: start: 20110201, end: 20110520
  2. AMARYL [Concomitant]
  3. ACTOPLUS MET (METFORMIN HYDROCHLORIDE, PIOGLITAZONE HYDROCHLORIDE) [Concomitant]

REACTIONS (2)
  - GLYCOSYLATED HAEMOGLOBIN INCREASED [None]
  - BLOOD GLUCOSE INCREASED [None]
